FAERS Safety Report 7300645-5 (Version None)
Quarter: 2011Q1

REPORT INFORMATION
  Report Type: 
  Country: None (occurrence: None)
  Receive Date: 20110218
  Receipt Date: 20110211
  Transmission Date: 20110831
  Serious: No
  Sender: FDA-Public Use
  Company Number: US-BIOGENIDEC-2011BI005160

PATIENT
  Sex: Female

DRUGS (1)
  1. AVONEX [Suspect]
     Indication: MULTIPLE SCLEROSIS
     Route: 030
     Dates: start: 20020610

REACTIONS (7)
  - TREMOR [None]
  - PAIN IN EXTREMITY [None]
  - ARTHRALGIA [None]
  - NASOPHARYNGITIS [None]
  - FATIGUE [None]
  - ANGER [None]
  - HEADACHE [None]
